FAERS Safety Report 5268237-X (Version None)
Quarter: 2007Q1

REPORT INFORMATION
  Report Type: 
  Country: None (occurrence: None)
  Receive Date: 20070319
  Receipt Date: 20070314
  Transmission Date: 20070707
  Serious: Yes (Other)
  Sender: FDA-Public Use
  Company Number: 2007UW02135

PATIENT
  Age: 687 Month
  Sex: Female
  Weight: 54.5 kg

DRUGS (7)
  1. ARIMIDEX [Suspect]
     Indication: BREAST CANCER FEMALE
     Route: 048
     Dates: start: 20040401
  2. ARIMIDEX [Suspect]
     Route: 048
  3. TOPAMAX [Concomitant]
  4. MULTI-VITAMINS [Concomitant]
  5. CALCIUM [Concomitant]
  6. VALTREX [Concomitant]
  7. ZOVIRAX [Concomitant]

REACTIONS (3)
  - HEADACHE [None]
  - NEURALGIA [None]
  - PARAESTHESIA [None]
